FAERS Safety Report 12091008 (Version 1)
Quarter: 2016Q1

REPORT INFORMATION
  Report Type: Spontaneous
  Country: FR (occurrence: FR)
  Receive Date: 20160218
  Receipt Date: 20160218
  Transmission Date: 20160526
  Serious: Yes (Other)
  Sender: FDA-Public Use
  Company Number: FR-ACTELION-A-CH2016-131152

PATIENT
  Age: 59 Year
  Sex: Male

DRUGS (6)
  1. FUROSEMIDE. [Concomitant]
     Active Substance: FUROSEMIDE
     Dosage: 40 MG, UNK
  2. TRACLEER [Suspect]
     Active Substance: BOSENTAN
     Indication: POLYCYTHAEMIA VERA
     Dosage: 62.5 MG, BID
     Route: 048
     Dates: start: 201507, end: 201601
  3. BROMAZEPAM [Concomitant]
     Active Substance: BROMAZEPAM
  4. ESOMEPRAZOLE [Concomitant]
     Active Substance: ESOMEPRAZOLE
     Dosage: 40 MG, UNK
  5. FLUINDIONE [Concomitant]
     Active Substance: FLUINDIONE
  6. DIFFU K [Concomitant]
     Active Substance: POTASSIUM CHLORIDE

REACTIONS (1)
  - Thrombocytopenia [Unknown]

NARRATIVE: CASE EVENT DATE: 201509
